FAERS Safety Report 23513470 (Version 1)
Quarter: 2024Q1

REPORT INFORMATION
  Report Type: Spontaneous
  Country: US (occurrence: None)
  Receive Date: 20240210
  Receipt Date: 20240210
  Transmission Date: 20240410
  Serious: Yes (Hospitalization)
  Sender: FDA-Public Use
  Company Number: None

PATIENT
  Age: 63 Year
  Sex: Male
  Weight: 83.9 kg

DRUGS (1)
  1. RITUXIMAB [Suspect]
     Active Substance: RITUXIMAB
     Dates: end: 20231214

REACTIONS (9)
  - Pneumonia [None]
  - Sepsis [None]
  - Hypoxia [None]
  - Pneumocystis jirovecii pneumonia [None]
  - Hyperglycaemia [None]
  - Pulmonary embolism [None]
  - Lung opacity [None]
  - Atelectasis [None]
  - Acute lung injury [None]

NARRATIVE: CASE EVENT DATE: 20240108
